FAERS Safety Report 8485548-5 (Version None)
Quarter: 2012Q2

REPORT INFORMATION
  Report Type: 
  Country: None (occurrence: None)
  Receive Date: 20120627
  Receipt Date: 20120627
  Transmission Date: 20120825
  Serious: No
  Sender: FDA-Public Use
  Company Number: None

PATIENT
  Sex: Female
  Weight: 70.3075 kg

DRUGS (1)
  1. LIPITOR [Suspect]
     Dosage: 1 DAILY PO
     Route: 048
     Dates: start: 20120601, end: 20120626

REACTIONS (2)
  - DIARRHOEA [None]
  - DEHYDRATION [None]
